FAERS Safety Report 7910494 (Version 4)
Quarter: 2013Q2

REPORT INFORMATION
  Report Type: Spontaneous
  Country: US (occurrence: US)
  Receive Date: 20110422
  Receipt Date: 20130418
  Transmission Date: 20140414
  Serious: Yes (Other)
  Sender: FDA-Public Use
  Company Number: US-BIOGENIDEC-2011BI014885

PATIENT
  Sex: Female

DRUGS (2)
  1. AVONEX [Suspect]
     Indication: MULTIPLE SCLEROSIS
     Route: 030
     Dates: start: 20101014
  2. BETASERON [Concomitant]

REACTIONS (5)
  - Lymphoma [Not Recovered/Not Resolved]
  - Injection site reaction [Recovered/Resolved]
  - Fall [Recovered/Resolved]
  - Pyrexia [Unknown]
  - Chills [Unknown]
